FAERS Safety Report 7228416-9 (Version None)
Quarter: 2011Q1

REPORT INFORMATION
  Report Type: 
  Country: None (occurrence: None)
  Receive Date: 20110114
  Receipt Date: 20110110
  Transmission Date: 20110831
  Serious: Yes (Other)
  Sender: FDA-Public Use
  Company Number: DK-AMGEN-DNKSP2010010464

PATIENT

DRUGS (10)
  1. ETANERCEPT [Suspect]
     Indication: RHEUMATOID ARTHRITIS
  2. PINEX [Concomitant]
     Indication: PAIN
     Dosage: UNK
  3. COLCHICINE [Concomitant]
     Indication: GOUT
     Dosage: 0.5 MG, 3X/DAY
  4. AZATHIOPRINE [Concomitant]
     Dosage: UNK
     Dates: start: 20041001, end: 20100805
  5. ETANERCEPT [Suspect]
     Indication: ANKYLOSING SPONDYLITIS
     Dosage: 50MG, WEEKLY
     Dates: start: 20081106, end: 20101207
  6. ACTILAX [Concomitant]
     Indication: CONSTIPATION
     Dosage: UNK
  7. TRADOLAN [Concomitant]
     Indication: PAIN
     Dosage: UNK
  8. REMINYL [Concomitant]
     Indication: DEMENTIA
     Dosage: UNK
  9. IBUMETIN [Concomitant]
     Dosage: 400 MG, 4X/DAY
  10. ALLOPURINOL [Concomitant]
     Dosage: 300 MG, 1X/DAY

REACTIONS (2)
  - DEMENTIA [None]
  - INFECTION [None]
